FAERS Safety Report 18718092 (Version 1)
Quarter: 2021Q1

REPORT INFORMATION
  Report Type: Spontaneous
  Country: DE (occurrence: DE)
  Receive Date: 20210108
  Receipt Date: 20210108
  Transmission Date: 20210419
  Serious: Yes (Other)
  Sender: FDA-Public Use
  Company Number: DE-DSJP-DSE-2021-100017

PATIENT
  Age: 77 Year
  Sex: Male

DRUGS (5)
  1. TESTOGEL [Interacting]
     Active Substance: TESTOSTERONE
     Indication: ANDROGEN DEFICIENCY
     Dosage: 2.5 MG, QD
     Dates: start: 202012, end: 20201226
  2. SIMVABETA [Concomitant]
     Active Substance: SIMVASTATIN
     Indication: PRODUCT USED FOR UNKNOWN INDICATION
     Dosage: UNK
  3. ATMADISC [Concomitant]
     Active Substance: FLUTICASONE PROPIONATE\SALMETEROL XINAFOATE
     Indication: PRODUCT USED FOR UNKNOWN INDICATION
     Dosage: UNK
  4. LIXIANA [Suspect]
     Active Substance: EDOXABAN TOSYLATE
     Indication: ARRHYTHMIA
     Dosage: UNK
     Dates: start: 202003
  5. TESTOGEL [Interacting]
     Active Substance: TESTOSTERONE
     Indication: FATIGUE

REACTIONS (7)
  - Arrhythmia [Recovered/Resolved]
  - Systolic hypertension [Recovered/Resolved]
  - Night sweats [Recovered/Resolved]
  - Adverse reaction [Recovered/Resolved]
  - Drug interaction [Recovered/Resolved]
  - Fatigue [Recovered/Resolved]
  - Heart rate increased [Recovered/Resolved]

NARRATIVE: CASE EVENT DATE: 202012
